FAERS Safety Report 24694386 (Version 1)
Quarter: 2024Q4

REPORT INFORMATION
  Report Type: Spontaneous
  Country: US (occurrence: US)
  Receive Date: 20241204
  Receipt Date: 20241204
  Transmission Date: 20250115
  Serious: Yes (Other)
  Sender: UPSHER SMITH LABORATORIES
  Company Number: US-UPSHER-SMITH LABORATORIES, LLC-20241100242

PATIENT
  Age: 68 Year
  Sex: Male

DRUGS (1)
  1. MIDODRINE HYDROCHLORIDE [Suspect]
     Active Substance: MIDODRINE HYDROCHLORIDE
     Indication: Hypotension
     Dosage: 10 MG, TID
     Route: 065

REACTIONS (4)
  - Gangrene [Unknown]
  - Vascular injury [Unknown]
  - Hypoaesthesia [Unknown]
  - Skin discolouration [Unknown]
